FAERS Safety Report 7943027-5 (Version None)
Quarter: 2011Q4

REPORT INFORMATION
  Report Type: 
  Country: None (occurrence: None)
  Receive Date: 20111128
  Receipt Date: 20111121
  Transmission Date: 20120403
  Serious: Yes (Hospitalization, Other)
  Sender: FDA-Public Use
  Company Number: US-US-EMD SERONO, INC.-7084786

PATIENT
  Sex: Female
  Weight: 60 kg

DRUGS (5)
  1. REBIF [Suspect]
     Route: 058
     Dates: end: 20110922
  2. NEBULIZER TREATMENTS [Concomitant]
     Indication: ASTHMA
  3. REBIF [Suspect]
     Indication: MULTIPLE SCLEROSIS
     Dates: start: 20110601, end: 20110801
  4. LAMICTAL [Concomitant]
     Indication: CONVULSION
  5. ADVAIR DISKUS 100/50 [Concomitant]
     Indication: ASTHMA

REACTIONS (14)
  - INJECTION SITE SWELLING [None]
  - HYPERTENSION [None]
  - PAIN [None]
  - INJECTION SITE ERYTHEMA [None]
  - CORONARY ARTERY OCCLUSION [None]
  - CHOLELITHIASIS [None]
  - MUSCULOSKELETAL STIFFNESS [None]
  - ARTHRALGIA [None]
  - INJECTION SITE PAIN [None]
  - MUSCLE SPASMS [None]
  - CHILLS [None]
  - INJECTION SITE HAEMATOMA [None]
  - BLOOD CHOLESTEROL INCREASED [None]
  - FEELING COLD [None]
